FAERS Safety Report 12309961 (Version 3)
Quarter: 2016Q3

REPORT INFORMATION
  Report Type: Spontaneous
  Country: US (occurrence: US)
  Receive Date: 20160427
  Receipt Date: 20160720
  Transmission Date: 20161109
  Serious: Yes (Hospitalization, Other)
  Sender: FDA-Public Use
  Company Number: US-PFIZER INC-2016223981

PATIENT
  Age: 55 Year
  Sex: Male

DRUGS (10)
  1. DILANTIN [Suspect]
     Active Substance: PHENYTOIN
     Indication: SEIZURE
     Dosage: 300 MG, UNK (3 AT BEDTIME 100MG)
     Dates: start: 2012
  2. SPIRONOLACTONE. [Suspect]
     Active Substance: SPIRONOLACTONE
     Dosage: 25 MG, 1X/DAY
     Dates: start: 2012
  3. AMLODIPINE [Concomitant]
     Active Substance: AMLODIPINE BESYLATE
     Dosage: 10 MG, UNK
     Dates: start: 2012
  4. MULTIVITAMINS WITH IRON [Concomitant]
     Active Substance: IRON\VITAMINS
     Dosage: UNK
  5. LOSARTAN POTASSIUM. [Concomitant]
     Active Substance: LOSARTAN POTASSIUM
     Dosage: 25 MG, UNK
     Dates: start: 2012
  6. CLONIDINE. [Suspect]
     Active Substance: CLONIDINE
     Indication: BLOOD PRESSURE ABNORMAL
     Dosage: 0.2 MG, 2X/DAY
     Dates: start: 2012
  7. FISH OIL [Concomitant]
     Active Substance: FISH OIL
     Dosage: UNK
  8. ASPIR-LOW 81 [Concomitant]
     Dosage: UNK
  9. FUROSEMIDE. [Suspect]
     Active Substance: FUROSEMIDE
     Dosage: 20 MG, 1X/DAY
     Dates: start: 2012
  10. METOPROLOL TARTRATE. [Suspect]
     Active Substance: METOPROLOL TARTRATE
     Indication: BLOOD PRESSURE ABNORMAL
     Dosage: 50 MG, 2X/DAY
     Dates: start: 2012

REACTIONS (6)
  - Cardiac disorder [Unknown]
  - Blood glucose decreased [Not Recovered/Not Resolved]
  - Syncope [Not Recovered/Not Resolved]
  - Hypertension [Unknown]
  - Cerebral disorder [Unknown]
  - Diabetes mellitus [Unknown]

NARRATIVE: CASE EVENT DATE: 2012
